FAERS Safety Report 7982121 (Version 2)
Quarter: 2012Q4

REPORT INFORMATION
  Report Type: Report from Study
  Country: JP (occurrence: JP)
  Receive Date: 20110609
  Receipt Date: 20121228
  Transmission Date: 20130627
  Serious: Yes (Death, Other)
  Sender: FDA-Public Use
  Company Number: PHHY2009JP08735

PATIENT
  Age: 74 Year
  Sex: Female
  Weight: 32 kg

DRUGS (9)
  1. ICL670A [Suspect]
     Indication: MULTIPLE MYELOMA
     Dosage: 625 mg, UNK
     Route: 048
     Dates: start: 20080916, end: 20080927
  2. DEXAMETHASONE SODIUM PHOSPHATE [Concomitant]
     Dosage: 40 mg, UNK
     Route: 042
     Dates: start: 20080915, end: 20080926
  3. TRANSAMIN [Concomitant]
     Dosage: 500 mg, UNK
     Route: 042
     Dates: start: 20080925
  4. CALCIUM CARBONATE [Concomitant]
     Dosage: 3000 mg, UNK
     Route: 048
     Dates: start: 20070809, end: 20080927
  5. FLUCONAZOLE [Concomitant]
     Indication: PROPHYLAXIS
     Dosage: 100 DF
     Route: 048
     Dates: end: 20080927
  6. PARIET [Concomitant]
     Dosage: 10 mg, UNK
     Route: 048
     Dates: start: 20080728, end: 20080927
  7. BAKTAR [Concomitant]
     Indication: PROPHYLAXIS
     Dosage: 2 DF
     Route: 048
     Dates: end: 20080927
  8. RED BLOOD CELLS, CONCENTRATED [Concomitant]
     Dosage: 2 U, UNK
     Dates: start: 20080916, end: 20081006
  9. PLATELETS, HUMAN BLOOD [Concomitant]
     Dosage: 10 U, UNK
     Dates: start: 20080919, end: 20081003

REACTIONS (10)
  - Liver disorder [Fatal]
  - Metastases to liver [Fatal]
  - Aspartate aminotransferase increased [Fatal]
  - Gamma-glutamyltransferase increased [Fatal]
  - Alanine aminotransferase increased [Fatal]
  - Sepsis [Fatal]
  - Septic shock [Fatal]
  - Renal disorder [Not Recovered/Not Resolved]
  - Blood creatinine increased [Not Recovered/Not Resolved]
  - Blood urea increased [Not Recovered/Not Resolved]
